FAERS Safety Report 4818974-3 (Version None)
Quarter: 2005Q4

REPORT INFORMATION
  Report Type: 
  Country: None (occurrence: None)
  Receive Date: 20051102
  Receipt Date: 20051102
  Transmission Date: 20060501
  Serious: Yes (Life-Threatening, Hospitalization, Disabling, Congenital Anomaly)
  Sender: FDA-Public Use
  Company Number: None

PATIENT
  Age: 2 Day
  Sex: Male
  Weight: 2.9484 kg

DRUGS (2)
  1. ZOLOFT [Suspect]
     Indication: POSTPARTUM DEPRESSION
     Dosage: 50MG   DAILY
     Dates: start: 20030101, end: 20040501
  2. ZOLOFT [Suspect]
     Indication: PROPHYLAXIS
     Dosage: 50MG   DAILY
     Dates: start: 20030101, end: 20040501

REACTIONS (2)
  - DRUG EXPOSURE DURING PREGNANCY [None]
  - HYPOPLASTIC LEFT HEART SYNDROME [None]
